FAERS Safety Report 4406826-2 (Version None)
Quarter: 2004Q3

REPORT INFORMATION
  Report Type: 
  Country: None (occurrence: None)
  Receive Date: 20040723
  Receipt Date: 20031121
  Transmission Date: 20050211
  Serious: Yes (Hospitalization, Disabling)
  Sender: FDA-Public Use
  Company Number: US-MERCK-0311USA02546

PATIENT
  Age: 44 Year
  Sex: Female
  Weight: 104 kg

DRUGS (11)
  1. [THERAPY UNSPECIFIED] [Concomitant]
     Indication: HYPERTENSION
     Route: 065
     Dates: start: 20010701, end: 20010801
  2. TYLENOL [Concomitant]
     Indication: PAIN
     Route: 065
     Dates: start: 19960601, end: 20030201
  3. ASPIRIN [Concomitant]
     Indication: PROPHYLAXIS
     Route: 065
  4. GLYBURIDE [Concomitant]
     Route: 065
  5. MOTRIN [Concomitant]
     Indication: PAIN
     Route: 065
     Dates: start: 19960601, end: 20030201
  6. ALEVE [Concomitant]
     Route: 065
     Dates: start: 19960601, end: 20030201
  7. PAXIL [Concomitant]
     Indication: SLEEP DISORDER
     Route: 065
     Dates: start: 20001001, end: 20010701
  8. VIOXX [Suspect]
     Indication: ARTHRITIS
     Route: 048
     Dates: start: 20001001
  9. VIOXX [Suspect]
     Route: 048
     Dates: end: 20020901
  10. VIOXX [Suspect]
     Indication: PAIN
     Route: 048
     Dates: start: 20001001
  11. VIOXX [Suspect]
     Route: 048
     Dates: end: 20020901

REACTIONS (4)
  - CEREBROVASCULAR ACCIDENT [None]
  - EMOTIONAL DISTRESS [None]
  - INJURY [None]
  - RENAL DISORDER [None]
